FAERS Safety Report 23103393 (Version 1)
Quarter: 2023Q4

REPORT INFORMATION
  Report Type: Spontaneous
  Country: US (occurrence: None)
  Receive Date: 20231022
  Receipt Date: 20231022
  Transmission Date: 20240109
  Serious: Yes (Hospitalization)
  Sender: FDA-Public Use
  Company Number: None

PATIENT
  Age: 76 Year
  Sex: Male
  Weight: 107 kg

DRUGS (1)
  1. WARFARIN SODIUM [Suspect]
     Active Substance: WARFARIN SODIUM
     Dosage: FREQUENCY : DAILY;?
     Dates: start: 20180609

REACTIONS (3)
  - Gastrointestinal haemorrhage [None]
  - Crohn^s disease [None]
  - Gastrointestinal ischaemia [None]

NARRATIVE: CASE EVENT DATE: 20230223
